FAERS Safety Report 7396137-8 (Version None)
Quarter: 2011Q2

REPORT INFORMATION
  Report Type: 
  Country: None (occurrence: None)
  Receive Date: 20110406
  Receipt Date: 20110330
  Transmission Date: 20111010
  Serious: Yes (Hospitalization)
  Sender: FDA-Public Use
  Company Number: CA-SP-2010-06696

PATIENT
  Sex: Female

DRUGS (9)
  1. CLONAZEPAM [Concomitant]
     Indication: ANXIETY
  2. NAPROSYN [Concomitant]
  3. TUBERCULIN NOS [Suspect]
     Indication: TUBERCULIN TEST
     Route: 023
     Dates: start: 20000921, end: 20000921
  4. VENTOLIN [Concomitant]
  5. BECLOFORTE [Concomitant]
  6. LORAZEPAM [Concomitant]
     Indication: ANXIETY
  7. TD POLIO ADS [Suspect]
     Indication: IMMUNISATION
     Dosage: NOT REPORTED
     Route: 030
     Dates: start: 20000921, end: 20000921
  8. REACTINE [Concomitant]
     Indication: HYPERSENSITIVITY
  9. PONSTAN [Concomitant]
     Indication: DYSMENORRHOEA

REACTIONS (22)
  - HEADACHE [None]
  - VOMITING [None]
  - DIZZINESS [None]
  - CROHN'S DISEASE [None]
  - BURNING SENSATION [None]
  - INSOMNIA [None]
  - CHRONIC FATIGUE SYNDROME [None]
  - DEHYDRATION [None]
  - DECREASED APPETITE [None]
  - DYSGEUSIA [None]
  - ENDOMETRIOSIS [None]
  - TREMOR [None]
  - HAIR TEXTURE ABNORMAL [None]
  - PALPITATIONS [None]
  - INCORRECT ROUTE OF DRUG ADMINISTRATION [None]
  - PAIN [None]
  - DEPRESSION [None]
  - FIBROMYALGIA [None]
  - DRY SKIN [None]
  - NAUSEA [None]
  - ABDOMINAL DISCOMFORT [None]
  - ANXIETY [None]
